FAERS Safety Report 5251041-6 (Version None)
Quarter: 2007Q1

REPORT INFORMATION
  Report Type: 
  Country: None (occurrence: None)
  Receive Date: 20070228
  Receipt Date: 20060814
  Transmission Date: 20070707
  Serious: Yes (Other)
  Sender: FDA-Public Use
  Company Number: US-GLAXOSMITHKLINE-A0616619A

PATIENT
  Age: 7 Year
  Sex: Male

DRUGS (1)
  1. LAMICTAL [Suspect]
     Indication: ATTENTION DEFICIT/HYPERACTIVITY DISORDER
     Dosage: 5MG SINGLE DOSE
     Route: 048
     Dates: start: 20060718, end: 20060718

REACTIONS (3)
  - DYSPHAGIA [None]
  - MUCOSA VESICLE [None]
  - STEVENS-JOHNSON SYNDROME [None]
